FAERS Safety Report 9709822 (Version 3)
Quarter: 2014Q1

REPORT INFORMATION
  Report Type: Spontaneous
  Country: US (occurrence: US)
  Receive Date: 20131126
  Receipt Date: 20140318
  Transmission Date: 20141002
  Serious: Yes (Hospitalization, Other)
  Sender: FDA-Public Use
  Company Number: US-PFIZER INC-2013334888

PATIENT
  Sex: Female

DRUGS (1)
  1. LYRICA [Suspect]
     Indication: PAIN
     Dosage: 75 MG, 2X/DAY

REACTIONS (4)
  - Drug dependence [Unknown]
  - Bladder cancer [Unknown]
  - Feeling abnormal [Unknown]
  - Drug ineffective [Unknown]
